FAERS Safety Report 24624837 (Version 2)
Quarter: 2024Q4

REPORT INFORMATION
  Report Type: Spontaneous
  Country: US (occurrence: US)
  Receive Date: 20241115
  Receipt Date: 20241204
  Transmission Date: 20250115
  Serious: No
  Sender: TELIX PHARMACEUTICALS
  Company Number: US-TLX-2024000203

PATIENT

DRUGS (1)
  1. ILLUCCIX [Suspect]
     Active Substance: GALLIUM GA-68 GOZETOTIDE
     Indication: Imaging procedure
     Route: 040

REACTIONS (1)
  - Burning sensation [Unknown]
